FAERS Safety Report 7742840-7 (Version None)
Quarter: 2011Q3

REPORT INFORMATION
  Report Type: 
  Country: None (occurrence: None)
  Receive Date: 20110912
  Receipt Date: 20110901
  Transmission Date: 20111222
  Serious: Yes (Other)
  Sender: FDA-Public Use
  Company Number: JP-ASTRAZENECA-2011SE53963

PATIENT
  Age: 44 Year
  Sex: Female

DRUGS (3)
  1. SEROQUEL [Suspect]
     Route: 048
     Dates: start: 20110728, end: 20110812
  2. NEORAL [Suspect]
     Route: 048
     Dates: start: 20110808
  3. SEROQUEL [Suspect]
     Route: 048
     Dates: start: 20110728, end: 20110812

REACTIONS (3)
  - OFF LABEL USE [None]
  - BLOOD CREATINE PHOSPHOKINASE INCREASED [None]
  - MYOGLOBIN URINE PRESENT [None]
